FAERS Safety Report 19784524 (Version 3)
Quarter: 2022Q1

REPORT INFORMATION
  Report Type: Report from Study
  Country: GB (occurrence: GB)
  Receive Date: 20210903
  Receipt Date: 20220205
  Transmission Date: 20220424
  Serious: Yes (Other)
  Sender: FDA-Public Use
  Company Number: GB-SA-SAC20210422000139

PATIENT
  Age: 63 Year
  Sex: Male

DRUGS (4)
  1. DUPILUMAB [Suspect]
     Active Substance: DUPILUMAB
     Indication: Dermatitis atopic
     Dosage: 300 MG, QOW
     Route: 058
     Dates: start: 20190306
  2. DUPILUMAB [Suspect]
     Active Substance: DUPILUMAB
     Indication: Dermatitis atopic
     Dosage: 300 MG, QOW
     Route: 058
  3. NAPROXEN [Concomitant]
     Active Substance: NAPROXEN
     Dosage: 500 MG, PRN
  4. BETAHISTINE [Concomitant]
     Active Substance: BETAHISTINE
     Dosage: 8MG, ONCE/TWICE A DAY INHALERS

REACTIONS (6)
  - Blindness unilateral [Unknown]
  - Limb injury [Unknown]
  - Device breakage [Unknown]
  - Visual impairment [Unknown]
  - Product use issue [Unknown]
  - Cataract [Unknown]

NARRATIVE: CASE EVENT DATE: 20210412
